FAERS Safety Report 8809660 (Version 2)
Quarter: 2015Q3

REPORT INFORMATION
  Report Type: Report from Study
  Country: US (occurrence: US)
  Receive Date: 20120926
  Receipt Date: 20150703
  Transmission Date: 20151125
  Serious: Yes (Other)
  Sender: FDA-Public Use
  Company Number: US-ROCHE-1124959

PATIENT
  Sex: Female
  Weight: 50 kg

DRUGS (24)
  1. AVASTIN [Suspect]
     Active Substance: BEVACIZUMAB
     Indication: BREAST CANCER FEMALE
     Route: 042
     Dates: start: 20060328
  2. CARBOPLATIN. [Concomitant]
     Active Substance: CARBOPLATIN
     Route: 065
  3. CLODRONATE [Concomitant]
     Active Substance: CLODRONATE DISODIUM
  4. AVASTIN [Suspect]
     Active Substance: BEVACIZUMAB
     Route: 042
     Dates: start: 20060502
  5. HERCEPTIN [Suspect]
     Active Substance: TRASTUZUMAB
     Route: 042
     Dates: start: 20060828
  6. ARANESP [Concomitant]
     Active Substance: DARBEPOETIN ALFA
     Route: 065
  7. PROCRIT [Concomitant]
     Active Substance: ERYTHROPOIETIN
     Route: 065
  8. FASLODEX [Concomitant]
     Active Substance: FULVESTRANT
  9. AVASTIN [Suspect]
     Active Substance: BEVACIZUMAB
     Route: 042
     Dates: start: 20060517
  10. ABRAXANE [Concomitant]
     Active Substance: PACLITAXEL
     Route: 065
  11. HERCEPTIN [Suspect]
     Active Substance: TRASTUZUMAB
     Route: 042
     Dates: start: 20060814
  12. HERCEPTIN [Suspect]
     Active Substance: TRASTUZUMAB
     Route: 042
     Dates: start: 20060821
  13. ZOMETA [Concomitant]
     Active Substance: ZOLEDRONIC ACID
     Route: 065
  14. ADVIL [Concomitant]
     Active Substance: IBUPROFEN
  15. TAXOL [Concomitant]
     Active Substance: PACLITAXEL
  16. PROCRIT [Concomitant]
     Active Substance: ERYTHROPOIETIN
     Route: 065
  17. GEMCITABINE [Concomitant]
     Active Substance: GEMCITABINE\GEMCITABINE HYDROCHLORIDE
  18. FEMARA [Concomitant]
     Active Substance: LETROZOLE
  19. AROMASIN [Concomitant]
     Active Substance: EXEMESTANE
  20. HERCEPTIN [Suspect]
     Active Substance: TRASTUZUMAB
     Indication: BREAST CANCER FEMALE
     Route: 042
     Dates: start: 200103
  21. XELODA [Suspect]
     Active Substance: CAPECITABINE
     Indication: BREAST CANCER FEMALE
     Route: 065
     Dates: start: 200410
  22. ARIMIDEX [Concomitant]
     Active Substance: ANASTROZOLE
  23. NAVELBINE [Concomitant]
     Active Substance: VINORELBINE TARTRATE
     Route: 065
  24. LETROZOLE. [Concomitant]
     Active Substance: LETROZOLE

REACTIONS (31)
  - Dysaesthesia [Unknown]
  - Dysuria [Unknown]
  - Arthralgia [Unknown]
  - Liver function test abnormal [Unknown]
  - Dysphagia [Unknown]
  - Oedema [Unknown]
  - Fatigue [Unknown]
  - Jaundice [Unknown]
  - Wheezing [Unknown]
  - Atelectasis [Unknown]
  - Physical examination abnormal [Unknown]
  - Dysphonia [Unknown]
  - Tachycardia [Unknown]
  - Decreased appetite [Unknown]
  - Weight decreased [Unknown]
  - Diplopia [Recovered/Resolved]
  - Hepatomegaly [Unknown]
  - Off label use [Unknown]
  - Hepatic failure [Unknown]
  - Vomiting [Unknown]
  - Disease progression [Unknown]
  - Cough [Unknown]
  - Diarrhoea [Unknown]
  - Malaise [Unknown]
  - Biliary dilatation [Unknown]
  - Frequent bowel movements [Unknown]
  - Neuralgia [Unknown]
  - Drug resistance [Unknown]
  - Dyspnoea [Unknown]
  - Hypoaesthesia [Unknown]
  - Neck pain [Recovered/Resolved]
